FAERS Safety Report 6028780-2 (Version None)
Quarter: 2009Q1

REPORT INFORMATION
  Report Type: 
  Country: None (occurrence: None)
  Receive Date: 20090106
  Receipt Date: 20081230
  Transmission Date: 20090719
  Serious: Yes (Other)
  Sender: FDA-Public Use
  Company Number: B0549509A

PATIENT
  Age: 16 Year
  Sex: Male
  Weight: 80 kg

DRUGS (5)
  1. WELLBUTRIN [Suspect]
     Indication: DRUG USE FOR UNKNOWN INDICATION
     Dosage: 300MG PER DAY
     Route: 065
  2. DIPIPERON [Concomitant]
     Indication: DRUG USE FOR UNKNOWN INDICATION
     Route: 065
  3. RISPERDAL [Concomitant]
     Indication: DRUG USE FOR UNKNOWN INDICATION
  4. CETIRIZINE HCL [Concomitant]
     Indication: DRUG USE FOR UNKNOWN INDICATION
     Dosage: 10MG PER DAY
     Route: 065
  5. UNKNOWN DRUG [Concomitant]
     Indication: DRUG USE FOR UNKNOWN INDICATION
     Dosage: 3MG PER DAY
     Route: 065

REACTIONS (4)
  - CONVULSION [None]
  - LOSS OF CONSCIOUSNESS [None]
  - SALIVARY HYPERSECRETION [None]
  - URINARY INCONTINENCE [None]
